FAERS Safety Report 10188175 (Version 1)
Quarter: 2014Q2

REPORT INFORMATION
  Report Type: Spontaneous
  Country: US (occurrence: US)
  Receive Date: 20140522
  Receipt Date: 20140522
  Transmission Date: 20141212
  Serious: No
  Sender: FDA-Public Use
  Company Number: US-MYLANLABS-2013S1011136

PATIENT
  Age: 89 Year
  Sex: Female
  Weight: 47.63 kg

DRUGS (5)
  1. FELODIPINE EXTENDED-RELEASE TABLETS, USP [Suspect]
     Indication: BLOOD PRESSURE INCREASED
     Route: 048
     Dates: start: 2012, end: 20130517
  2. CELEBREX [Concomitant]
     Indication: ARTHRITIS
  3. CLOPIDOGREL [Concomitant]
     Indication: CEREBROVASCULAR ACCIDENT
  4. LEVOTHYROXINE [Concomitant]
     Indication: HYPOTHYROIDISM
  5. FLUOXETINE [Concomitant]
     Indication: PANIC ATTACK

REACTIONS (2)
  - Rash generalised [Not Recovered/Not Resolved]
  - Pruritus [Not Recovered/Not Resolved]
